FAERS Safety Report 18956225 (Version 1)
Quarter: 2021Q1

REPORT INFORMATION
  Report Type: Spontaneous
  Country: DE (occurrence: DE)
  Receive Date: 20210301
  Receipt Date: 20210301
  Transmission Date: 20210420
  Serious: Yes (Hospitalization, Other)
  Sender: FDA-Public Use
  Company Number: DE-ANIPHARMA-2021-DE-000028

PATIENT
  Age: 81 Year
  Sex: Female
  Weight: 71 kg

DRUGS (8)
  1. CISPLATIN. [Suspect]
     Active Substance: CISPLATIN
     Dosage: UNKNOWN DOSE AND FREQUENCY
     Route: 065
  2. ZOPICLON [Concomitant]
     Active Substance: ZOPICLONE
     Dosage: 7.5 MG UNK
     Route: 065
  3. TORASEMIDE [Concomitant]
     Active Substance: TORSEMIDE
     Dosage: 10 MG UNK
     Route: 065
  4. CANDESARTAN CILEXETIL. [Suspect]
     Active Substance: CANDESARTAN CILEXETIL
     Indication: PRODUCT USED FOR UNKNOWN INDICATION
     Dosage: 32 MG QD
     Route: 048
  5. BISOPROLOL [Concomitant]
     Active Substance: BISOPROLOL
     Dosage: 1.25 MG BID
     Route: 065
  6. GEMCITABINE. [Suspect]
     Active Substance: GEMCITABINE
     Dosage: UNKNOWN DOSE AND FREQUENCY
     Route: 065
  7. HYGROTON [Suspect]
     Active Substance: CHLORTHALIDONE
     Dosage: 25 MG QD
     Route: 065
  8. TRAMADOL. [Concomitant]
     Active Substance: TRAMADOL
     Dosage: 200 MG BID
     Route: 065

REACTIONS (7)
  - Condition aggravated [Unknown]
  - Peripheral swelling [Unknown]
  - Erythema [Unknown]
  - Oedema peripheral [Unknown]
  - Pancytopenia [Unknown]
  - Strabismus [Unknown]
  - General physical health deterioration [Unknown]
